FAERS Safety Report 24784497 (Version 1)
Quarter: 2024Q4

REPORT INFORMATION
  Report Type: Spontaneous
  Country: FR (occurrence: FR)
  Receive Date: 20241227
  Receipt Date: 20241227
  Transmission Date: 20250115
  Serious: Yes (Other)
  Sender: MYLAN
  Company Number: None

PATIENT
  Age: 19 Year
  Sex: Male

DRUGS (2)
  1. XANAX [Suspect]
     Active Substance: ALPRAZOLAM
     Indication: Product used for unknown indication
     Dosage: 10 DOSAGE FORM, QD (QD (10 OF 0.50 MG PER DAY))
     Route: 055
     Dates: end: 202401
  2. XANAX [Suspect]
     Active Substance: ALPRAZOLAM
     Dosage: 3 MILLIGRAM, QD (3MG EVERY NIGHT )
     Route: 055
     Dates: start: 20240209

REACTIONS (2)
  - Substance use disorder [Not Recovered/Not Resolved]
  - Intentional product misuse [Not Recovered/Not Resolved]
